FAERS Safety Report 5413446-X (Version None)
Quarter: 2007Q3

REPORT INFORMATION
  Report Type: 
  Country: None (occurrence: None)
  Receive Date: 20070809
  Receipt Date: 20070809
  Transmission Date: 20080115
  Serious: Yes (Hospitalization)
  Sender: FDA-Public Use
  Company Number: None

PATIENT
  Age: 81 Year
  Sex: Female

DRUGS (7)
  1. AMIODARONE HCL [Suspect]
     Indication: ATRIAL FIBRILLATION
     Dosage: 200 MG BID PO
     Route: 048
     Dates: start: 20060511, end: 20060617
  2. SYNTHROID [Concomitant]
  3. LISINOPRIL [Concomitant]
  4. CARDIZEM [Concomitant]
  5. AMIODARONE HCL [Concomitant]
  6. COUMADIN [Concomitant]
  7. ARIMIDEX [Concomitant]

REACTIONS (2)
  - HYPERTHYROIDISM [None]
  - SYNCOPE [None]
